FAERS Safety Report 6603340-0 (Version None)
Quarter: 2010Q1

REPORT INFORMATION
  Report Type: 
  Country: None (occurrence: None)
  Receive Date: 20100226
  Receipt Date: 20090209
  Transmission Date: 20100710
  Serious: No
  Sender: FDA-Public Use
  Company Number: A0767702A

PATIENT
  Age: 19 Year
  Sex: Female

DRUGS (5)
  1. VALTREX [Suspect]
     Dosage: 500MG THREE TIMES PER DAY
     Route: 048
     Dates: start: 20090201, end: 20090208
  2. DEPO-PROVERA [Concomitant]
  3. UNSPECIFIED MEDICATION [Concomitant]
  4. LACTOSE MEDICATION (UNSPECIFIED) [Concomitant]
  5. VITAMINS [Concomitant]

REACTIONS (5)
  - CHEILITIS [None]
  - DRUG INEFFECTIVE [None]
  - HYPERSENSITIVITY [None]
  - LIP DISORDER [None]
  - LIP PAIN [None]
